FAERS Safety Report 8586670-5 (Version None)
Quarter: 2012Q3

REPORT INFORMATION
  Report Type: 
  Country: None (occurrence: None)
  Receive Date: 20120810
  Receipt Date: 20120418
  Transmission Date: 20120928
  Serious: Yes (Other)
  Sender: FDA-Public Use
  Company Number: DE-UCBSA-057815

PATIENT
  Age: 48 Year
  Sex: Female

DRUGS (3)
  1. NEURONTIN [Concomitant]
     Dosage: 800 MG
  2. ZONEGRAN [Concomitant]
     Dosage: 100 MG
  3. VIMPAT [Suspect]
     Indication: EPILEPSY
     Dosage: STRENGTH: 200 MG

REACTIONS (10)
  - DYSPNOEA [None]
  - FREQUENT BOWEL MOVEMENTS [None]
  - PAIN IN EXTREMITY [None]
  - INJURY [None]
  - AURA [None]
  - CONTUSION [None]
  - ADVERSE EVENT [None]
  - GRAND MAL CONVULSION [None]
  - HEADACHE [None]
  - ACCIDENT [None]
